FAERS Safety Report 9016375 (Version 2)
Quarter: 2013Q1

REPORT INFORMATION
  Report Type: Spontaneous
  Country: IT (occurrence: IT)
  Receive Date: 20130116
  Receipt Date: 20130206
  Transmission Date: 20140127
  Serious: Yes (Hospitalization)
  Sender: FDA-Public Use
  Company Number: IT-BAYER-2013-004095

PATIENT
  Age: 63 Year
  Sex: Male

DRUGS (2)
  1. NEXAVAR [Suspect]
     Indication: HEPATOCELLULAR CARCINOMA
     Dosage: DAILY DOSE 800 MG
     Route: 048
     Dates: start: 20110218, end: 20110927
  2. ENTECAVIR [Concomitant]
     Dosage: DAILY DOSE .5 MG
     Route: 048
     Dates: start: 20080901, end: 20110927

REACTIONS (2)
  - Sepsis [Not Recovered/Not Resolved]
  - Gallbladder abscess [Not Recovered/Not Resolved]
